FAERS Safety Report 8032359-0 (Version None)
Quarter: 2011Q4

REPORT INFORMATION
  Report Type: 
  Country: None (occurrence: None)
  Receive Date: 20111201
  Receipt Date: 20110405
  Transmission Date: 20120403
  Serious: Yes (Other)
  Sender: FDA-Public Use
  Company Number: 2011SP015370

PATIENT
  Age: 57 Year
  Sex: Female

DRUGS (1)
  1. NASONEX [Suspect]
     Indication: NASAL CONGESTION
     Dosage: 4 DF;QD;NAS
     Route: 045

REACTIONS (3)
  - HOLMES-ADIE PUPIL [None]
  - CATARACT [None]
  - GLAUCOMA [None]
